FAERS Safety Report 23092684 (Version 1)
Quarter: 2023Q4

REPORT INFORMATION
  Report Type: Spontaneous
  Country: NL (occurrence: NL)
  Receive Date: 20231021
  Receipt Date: 20231021
  Transmission Date: 20240109
  Serious: Yes (Hospitalization)
  Sender: FDA-Public Use
  Company Number: NL-EMA-DD-20231003-5861859-132725

PATIENT
  Age: 67 Year
  Sex: Female

DRUGS (4)
  1. BEVACIZUMAB [Suspect]
     Active Substance: BEVACIZUMAB
     Indication: Colorectal cancer metastatic
     Dates: start: 20220204, end: 20220223
  2. CAPECITABINE [Suspect]
     Active Substance: CAPECITABINE
     Indication: Colorectal cancer metastatic
     Dates: start: 20220204, end: 20220223
  3. CAPECITABINE [Suspect]
     Active Substance: CAPECITABINE
     Indication: Colorectal cancer metastatic
     Dosage: 8000 MG/M2 DAILY; 4000 MG/M2, TWICE A DAY
     Dates: start: 20220204, end: 20220223
  4. OXALIPLATIN [Suspect]
     Active Substance: OXALIPLATIN
     Indication: Colorectal cancer metastatic
     Dates: start: 20220204, end: 20220223

REACTIONS (2)
  - Pleural effusion [Recovered/Resolved]
  - Arteriospasm coronary [Unknown]

NARRATIVE: CASE EVENT DATE: 20220223
